FAERS Safety Report 6474646-3 (Version None)
Quarter: 2009Q4

REPORT INFORMATION
  Report Type: 
  Country: None (occurrence: None)
  Receive Date: 20091204
  Receipt Date: 20090120
  Transmission Date: 20100525
  Serious: Yes (Hospitalization)
  Sender: FDA-Public Use
  Company Number: ES-ELI_LILLY_AND_COMPANY-ES200901003440

PATIENT
  Age: 78 Year
  Sex: Female

DRUGS (9)
  1. FORTEO [Suspect]
     Indication: OSTEOPOROSIS
     Dosage: 20 UG, UNKNOWN
     Route: 058
     Dates: start: 20070101, end: 20080601
  2. FORTEO [Suspect]
     Dosage: UNK, UNKNOWN
     Route: 065
     Dates: start: 20081023, end: 20081224
  3. FORTEO [Suspect]
     Dosage: UNK, UNKNOWN
     Route: 065
     Dates: start: 20090116
  4. INSULIN [Concomitant]
     Indication: DIABETES MELLITUS
  5. SINTROM [Concomitant]
  6. TRANSDERM [Concomitant]
     Indication: PAIN
  7. SUMADOL [Concomitant]
  8. CALCIUM [Concomitant]
  9. DIGITALIS GLYCOSIDES [Concomitant]

REACTIONS (6)
  - BRONCHOPNEUMONIA [None]
  - COUGH [None]
  - LUNG DISORDER [None]
  - RESPIRATORY FAILURE [None]
  - THERAPEUTIC AGENT TOXICITY [None]
  - URINARY TRACT INFECTION [None]
